FAERS Safety Report 15880044 (Version 1)
Quarter: 2019Q1

REPORT INFORMATION
  Report Type: Spontaneous
  Country: US (occurrence: US)
  Receive Date: 20190128
  Receipt Date: 20190128
  Transmission Date: 20190417
  Serious: No
  Sender: FDA-Public Use
  Company Number: US-GLAXOSMITHKLINE-US2018GSK209854

PATIENT
  Age: 70 Year
  Sex: Female

DRUGS (1)
  1. BENLYSTA [Suspect]
     Active Substance: BELIMUMAB
     Indication: SYSTEMIC LUPUS ERYTHEMATOSUS
     Dosage: UNK

REACTIONS (7)
  - Anxiety [Unknown]
  - Negative thoughts [Unknown]
  - Somnolence [Unknown]
  - Decreased appetite [Unknown]
  - Ill-defined disorder [Unknown]
  - Fatigue [Unknown]
  - Asthenia [Unknown]
